FAERS Safety Report 9064675 (Version 2)
Quarter: 2013Q1

REPORT INFORMATION
  Report Type: Report from Study
  Country: DE (occurrence: DE)
  Receive Date: 20130116
  Receipt Date: 20130116
  Transmission Date: 20140127
  Serious: Yes (Hospitalization, Other)
  Sender: FDA-Public Use
  Company Number: PHHY2012DE112634

PATIENT
  Sex: Male

DRUGS (7)
  1. AFINITOR [Suspect]
     Indication: METASTATIC RENAL CELL CARCINOMA
     Dosage: 10 MG, QD
     Route: 048
     Dates: start: 20120907
  2. ALLOPURINOL [Concomitant]
     Indication: HYPERURICAEMIA
     Dosage: 300 MG, UNK
     Dates: start: 20050101
  3. BISOPROLOL [Concomitant]
     Indication: HYPERTENSION
     Dosage: 5 MG, UNK
     Dates: start: 20050101
  4. PANTOZOL [Concomitant]
     Indication: PROPHYLAXIS
     Dosage: 40 MG, UNK
     Dates: start: 20050101
  5. L-THYROX [Concomitant]
     Indication: HYPOTHYROIDISM
     Dosage: 125 UG, UNK
     Dates: start: 20050101
  6. OPIPRAMOL [Concomitant]
     Indication: DEPRESSION
     Dosage: 50 MG, UNK
     Dates: start: 20080101
  7. OMACOR [Concomitant]
     Indication: HYPERLIPIDAEMIA
     Dosage: 1000 MG, UNK
     Dates: start: 20080101

REACTIONS (2)
  - Impaired work ability [Unknown]
  - Nausea [Recovered/Resolved]
